FAERS Safety Report 9275361 (Version 3)
Quarter: 2013Q3

REPORT INFORMATION
  Report Type: Spontaneous
  Country: US (occurrence: US)
  Receive Date: 20130507
  Receipt Date: 20130713
  Transmission Date: 20140515
  Serious: Yes (Other)
  Sender: FDA-Public Use
  Company Number: US-JNJFOC-20130404094

PATIENT
  Sex: Female
  Weight: 51.26 kg

DRUGS (5)
  1. ROGAINE FOR WOMEN [Suspect]
     Route: 061
  2. ROGAINE FOR WOMEN [Suspect]
     Indication: ALOPECIA
     Dosage: AS DIRECTED
     Route: 061
     Dates: start: 2012
  3. VYTORIN [Concomitant]
     Indication: BLOOD CHOLESTEROL
     Route: 065
  4. EFFEXOR [Concomitant]
     Indication: DEPRESSION
     Route: 065
  5. LORAZEPAM [Concomitant]
     Indication: DEPRESSION
     Route: 065

REACTIONS (3)
  - Scleroderma [Not Recovered/Not Resolved]
  - Depression [Unknown]
  - Alopecia [Unknown]
